FAERS Safety Report 16229194 (Version 2)
Quarter: 2019Q2

REPORT INFORMATION
  Report Type: Spontaneous
  Country: GB (occurrence: GB)
  Receive Date: 20190423
  Receipt Date: 20190425
  Transmission Date: 20190711
  Serious: Yes (Hospitalization)
  Sender: FDA-Public Use
  Company Number: GB-PFIZER INC-2019166165

PATIENT
  Age: 82 Year

DRUGS (20)
  1. DOXAZOSIN MESILATE [Suspect]
     Active Substance: DOXAZOSIN MESYLATE
     Dosage: 1 MG, 1X/DAY
  2. PARACETAMOL [Concomitant]
     Active Substance: ACETAMINOPHEN
     Dosage: UNK
  3. FOSTAIR [Concomitant]
     Active Substance: BECLOMETHASONE\FORMOTEROL
     Dosage: 200MICROGRAMS/DOSE / 6MICROGRAMS
     Route: 055
  4. GLYCEROL [Concomitant]
     Active Substance: GLYCERIN
     Dosage: 1 G, UNK
  5. RAMIPRIL. [Suspect]
     Active Substance: RAMIPRIL
     Dosage: 1.25 MG, 1X/DAY (MORNING)
  6. BISOPROLOL [Suspect]
     Active Substance: BISOPROLOL
     Dosage: 2.5 MG, 1X/DAY
  7. DARIFENACIN. [Concomitant]
     Active Substance: DARIFENACIN
     Dosage: UNK
  8. TIOTROPIUM [Concomitant]
     Active Substance: TIOTROPIUM
     Dosage: UNK
  9. GLYCERYL TRINITRATE [Concomitant]
     Active Substance: NITROGLYCERIN
     Dosage: 400 UG, UNK
     Route: 060
  10. SALBUTAMOL [Concomitant]
     Active Substance: ALBUTEROL
     Dosage: 100 UG, UNK (INHALER CFC FREE)
     Route: 055
  11. BISACODYL. [Concomitant]
     Active Substance: BISACODYL
     Dosage: UNK
  12. SPIRONOLACTONE. [Suspect]
     Active Substance: SPIRONOLACTONE
     Dosage: 25 MG, 1X/DAY
  13. ISOSORBIDE MONONITRATE. [Suspect]
     Active Substance: ISOSORBIDE MONONITRATE
     Dosage: 40 MG, 1X/DAY
  14. CO-BENELDOPA [Concomitant]
     Active Substance: BENSERAZIDE HYDROCHLORIDE\LEVODOPA
     Dosage: UNK
  15. FUROSEMIDE. [Suspect]
     Active Substance: FUROSEMIDE
     Dosage: 80 MG, MORNING
  16. DOCUSATE [Concomitant]
     Active Substance: DOCUSATE
     Dosage: UNK
  17. WARFARIN [Concomitant]
     Active Substance: WARFARIN
     Dosage: UNK
  18. LACTULOSE. [Concomitant]
     Active Substance: LACTULOSE
     Dosage: UNK
  19. STARCH [Concomitant]
     Active Substance: STARCH
     Dosage: UNK
  20. SERTRALINE [Concomitant]
     Active Substance: SERTRALINE HYDROCHLORIDE
     Dosage: UNK

REACTIONS (2)
  - Hypotension [Recovering/Resolving]
  - Acute kidney injury [Recovering/Resolving]
